FAERS Safety Report 7490797-9 (Version None)
Quarter: 2011Q2

REPORT INFORMATION
  Report Type: 
  Country: None (occurrence: None)
  Receive Date: 20110519
  Receipt Date: 20110516
  Transmission Date: 20111010
  Serious: Yes (Death)
  Sender: FDA-Public Use
  Company Number: US-AMGEN-QUU402664

PATIENT
  Age: 88 Year
  Sex: Female
  Weight: 53.515 kg

DRUGS (3)
  1. NPLATE [Suspect]
     Indication: IDIOPATHIC THROMBOCYTOPENIC PURPURA
     Dosage: 15 A?G, QWK
     Route: 058
     Dates: start: 20081015, end: 20090331
  2. CORTICOSTEROIDS [Concomitant]
  3. RITUXIMAB [Concomitant]
     Dosage: UNK UNK, UNK
     Dates: start: 20080807

REACTIONS (1)
  - CEREBROVASCULAR ACCIDENT [None]
